FAERS Safety Report 21529077 (Version 3)
Quarter: 2022Q4

REPORT INFORMATION
  Report Type: Spontaneous
  Country: FR (occurrence: FR)
  Receive Date: 20221031
  Receipt Date: 20221110
  Transmission Date: 20230112
  Serious: Yes (Life-Threatening, Hospitalization, Other)
  Sender: FDA-Public Use
  Company Number: FR-MLMSERVICE-20221013-3860361-1

PATIENT
  Age: 2 Month
  Sex: Female
  Weight: 4.2 kg

DRUGS (6)
  1. MINOXIDIL [Suspect]
     Active Substance: MINOXIDIL
     Indication: Malignant renal hypertension
     Dosage: 0.2 MG/KG/DAY
     Route: 065
  2. MINOXIDIL [Suspect]
     Active Substance: MINOXIDIL
     Dosage: INCREASED; 1.4 MG/KG/DAY
     Route: 065
  3. AMLODIPINE [Suspect]
     Active Substance: AMLODIPINE BESYLATE
     Indication: Malignant renal hypertension
     Dosage: 0.6 MG/KG, 1X/DAY
     Route: 048
  4. NICARDIPINE [Concomitant]
     Active Substance: NICARDIPINE
     Indication: Malignant renal hypertension
     Dosage: 5 ?G/KG/MIN
     Route: 042
  5. MILRINONE [Concomitant]
     Active Substance: MILRINONE
     Indication: Cardiogenic shock
     Dosage: 0.5 ?G/KG/MIN
  6. ACEBUTOLOL [Concomitant]
     Active Substance: ACEBUTOLOL
     Indication: Malignant renal hypertension
     Dosage: 10 MG/KG, 1X/DAY
     Route: 048

REACTIONS (8)
  - Toxicity to various agents [Recovered/Resolved]
  - Pericardial effusion [Recovered/Resolved]
  - Cardiac tamponade [Recovered/Resolved]
  - Respiratory failure [Recovered/Resolved]
  - Pleural effusion [Recovered/Resolved]
  - Haemodynamic instability [Recovered/Resolved]
  - Off label use [Unknown]
  - Off label use [Unknown]
